FAERS Safety Report 7658243-X (Version None)
Quarter: 2011Q3

REPORT INFORMATION
  Report Type: 
  Country: None (occurrence: None)
  Receive Date: 20110802
  Receipt Date: 20110718
  Transmission Date: 20111222
  Serious: Yes (Hospitalization, Other)
  Sender: FDA-Public Use
  Company Number: AUR-APL-2011-03998

PATIENT
  Age: 49 Year
  Sex: Female

DRUGS (2)
  1. TOPIRAMATE [Suspect]
     Indication: EPILEPSY
     Dosage: (200 MG, 1 D), UNKNOWN
  2. VALPROIC ACID [Suspect]
     Indication: EPILEPSY
     Dosage: [1500 MG, 1 D)

REACTIONS (5)
  - DISORIENTATION [None]
  - ABNORMAL BEHAVIOUR [None]
  - ENCEPHALOPATHY [None]
  - HYPERAMMONAEMIA [None]
  - HYPERAMMONAEMIC ENCEPHALOPATHY [None]
